FAERS Safety Report 25384398 (Version 1)
Quarter: 2025Q2

REPORT INFORMATION
  Report Type: Spontaneous
  Country: US (occurrence: US)
  Receive Date: 20250602
  Receipt Date: 20250602
  Transmission Date: 20250717
  Serious: Yes (Hospitalization, Other)
  Sender: ROCHE
  Company Number: US-ROCHE-10000274858

PATIENT
  Sex: Male
  Weight: 73 kg

DRUGS (1)
  1. ACTEMRA ACTPEN [Suspect]
     Active Substance: TOCILIZUMAB
     Indication: Rheumatoid arthritis
     Dosage: INJECT 162MG SUBCUTANEOUSLY ONCE EVERY WEEK
     Route: 058

REACTIONS (6)
  - Hypokalaemia [Recovered/Resolved]
  - Chest pain [Unknown]
  - Asthenia [Unknown]
  - Gait disturbance [Unknown]
  - Prostate cancer [Unknown]
  - Cholecystitis chronic [Unknown]
